FAERS Safety Report 6110660-5 (Version None)
Quarter: 2009Q1

REPORT INFORMATION
  Report Type: 
  Country: None (occurrence: None)
  Receive Date: 20090310
  Receipt Date: 20090306
  Transmission Date: 20090719
  Serious: Yes (Other)
  Sender: FDA-Public Use
  Company Number: US-ABBOTT-09P-163-0560933-00

PATIENT
  Sex: Female
  Weight: 83.082 kg

DRUGS (4)
  1. MERIDIA [Suspect]
     Indication: OBESITY
     Route: 048
     Dates: start: 20040101, end: 20090113
  2. SINGULAIR [Concomitant]
     Indication: HYPERSENSITIVITY
     Route: 048
  3. SINGULAIR [Concomitant]
     Indication: ASTHMA
  4. LEVOTHYROXINE SODIUM [Concomitant]
     Indication: HYPOTHYROIDISM
     Route: 048

REACTIONS (2)
  - ABORTION SPONTANEOUS [None]
  - FOETAL HEART RATE ABNORMAL [None]
